FAERS Safety Report 19245225 (Version 1)
Quarter: 2021Q2

REPORT INFORMATION
  Report Type: Report from Study
  Country: US (occurrence: US)
  Receive Date: 20210511
  Receipt Date: 20210511
  Transmission Date: 20210717
  Serious: Yes (Other)
  Sender: FDA-Public Use
  Company Number: US-B.I. PHARMACEUTICALS,INC./RIDGEFIELD-2021-BI-101753

PATIENT

DRUGS (3)
  1. SPIRIVA RESPIMAT [Suspect]
     Active Substance: TIOTROPIUM BROMIDE
     Indication: CHRONIC OBSTRUCTIVE PULMONARY DISEASE
     Dosage: 2.5 MCG, TWO PUFFS TAKEN IN THE MORNING
     Route: 055
  2. ALBUTEROL [SALBUTAMOL] [Concomitant]
     Active Substance: ALBUTEROL
     Indication: PRODUCT USED FOR UNKNOWN INDICATION
  3. ENSIFENTRINE. [Suspect]
     Active Substance: ENSIFENTRINE
     Indication: CHRONIC OBSTRUCTIVE PULMONARY DISEASE
     Dosage: NEBULIZER FOR 5?10 MINUTES. TO BE TAKEN IN THE EVENING APPROXIMATELY 12 HOURS AFTER THE MORNING DOSE

REACTIONS (1)
  - Chronic obstructive pulmonary disease [Unknown]
